FAERS Safety Report 7542289-6 (Version None)
Quarter: 2011Q2

REPORT INFORMATION
  Report Type: 
  Country: None (occurrence: None)
  Receive Date: 20110613
  Receipt Date: 20110606
  Transmission Date: 20111010
  Serious: Yes (Death)
  Sender: FDA-Public Use
  Company Number: US-PFIZER INC-2011124593

PATIENT
  Sex: Male

DRUGS (1)
  1. REVATIO [Suspect]
     Indication: VENTRICULAR FAILURE
     Dosage: 40 MG, 3X/DAY (EVERY 8 HOURS)
     Dates: start: 20110301, end: 20110507

REACTIONS (1)
  - DEATH [None]
